FAERS Safety Report 25424694 (Version 1)
Quarter: 2025Q2

REPORT INFORMATION
  Report Type: Spontaneous
  Country: US (occurrence: None)
  Receive Date: 20250611
  Receipt Date: 20250611
  Transmission Date: 20250717
  Serious: Yes (Hospitalization, Disabling)
  Sender: FDA-CTU
  Company Number: None

PATIENT
  Age: 23 Year
  Sex: Male
  Weight: 63 kg

DRUGS (1)
  1. .DELTA.9-TETRAHYDROCANNABINOL\HERBALS [Suspect]
     Active Substance: .DELTA.9-TETRAHYDROCANNABINOL\HERBALS
     Indication: Substance use
     Route: 055
     Dates: start: 20240525, end: 20250610

REACTIONS (7)
  - Hallucination [None]
  - Amnesia [None]
  - Communication disorder [None]
  - Aphasia [None]
  - Abnormal behaviour [None]
  - Poor personal hygiene [None]
  - Drug dependence [None]

NARRATIVE: CASE EVENT DATE: 20250610
